FAERS Safety Report 5160615-2 (Version None)
Quarter: 2006Q4

REPORT INFORMATION
  Report Type: 
  Country: None (occurrence: None)
  Receive Date: 20061121
  Receipt Date: 20061110
  Transmission Date: 20070319
  Serious: Yes (Disabling, Other)
  Sender: FDA-Public Use
  Company Number: 2003041194

PATIENT
  Age: 47 Year
  Sex: Female

DRUGS (8)
  1. LIPITOR [Suspect]
     Indication: BLOOD CHOLESTEROL
     Dosage: 20 MG (1 IN 1 D)
     Dates: start: 20000401, end: 20010101
  2. WELCHOL [Suspect]
     Indication: BLOOD CHOLESTEROL
     Dosage: 2 IN 1 D
     Dates: start: 20010215
  3. CALCIUM [Concomitant]
  4. MOTRIN [Concomitant]
  5. FERROUS SULFATE TAB [Concomitant]
  6. PROTEIN SUPPLEMENTS [Concomitant]
  7. ACETYLSALICYLIC ACID SRT [Concomitant]
  8. ZOCOR [Concomitant]

REACTIONS (34)
  - ABASIA [None]
  - ANISOCYTOSIS [None]
  - ARTHRALGIA [None]
  - BACK PAIN [None]
  - BLOOD CHLORIDE INCREASED [None]
  - BLOOD CHOLESTEROL INCREASED [None]
  - CARBON DIOXIDE DECREASED [None]
  - CHEST PAIN [None]
  - DENTAL CARIES [None]
  - DYSPEPSIA [None]
  - ELECTROCARDIOGRAM ST SEGMENT ABNORMAL [None]
  - HAEMATOCRIT DECREASED [None]
  - HAEMOGLOBIN DECREASED [None]
  - HYPOCHROMASIA [None]
  - INSOMNIA [None]
  - JOINT STIFFNESS [None]
  - LOW DENSITY LIPOPROTEIN INCREASED [None]
  - MEAN CELL HAEMOGLOBIN DECREASED [None]
  - MEAN CELL VOLUME DECREASED [None]
  - MENSTRUATION IRREGULAR [None]
  - MICROCYTOSIS [None]
  - MUSCLE INJURY [None]
  - MYOSITIS [None]
  - NEPHROLITHIASIS [None]
  - OLIGOMENORRHOEA [None]
  - PAIN IN EXTREMITY [None]
  - PHOTOSENSITIVITY REACTION [None]
  - POLLAKIURIA [None]
  - PYREXIA [None]
  - RASH [None]
  - RESORPTION BONE INCREASED [None]
  - SPECIFIC GRAVITY URINE ABNORMAL [None]
  - SPINAL OSTEOARTHRITIS [None]
  - WEIGHT INCREASED [None]
